FAERS Safety Report 5025548-0 (Version None)
Quarter: 2006Q2

REPORT INFORMATION
  Report Type: 
  Country: None (occurrence: None)
  Receive Date: 20060426
  Receipt Date: 20060205
  Transmission Date: 20061013
  Serious: Yes (Other)
  Sender: FDA-Public Use
  Company Number: 2006018275

PATIENT
  Age: 84 Year
  Sex: Female
  Weight: 39.4629 kg

DRUGS (5)
  1. LYRICA [Suspect]
     Indication: PAIN
     Dosage: 100 MG (50 MG, 2 IN 1 D)
     Dates: start: 20060130
  2. LYRICA [Suspect]
     Indication: PAIN IN EXTREMITY
     Dosage: 100 MG (50 MG, 2 IN 1 D)
     Dates: start: 20060130
  3. LYRICA [Suspect]
     Indication: RESTLESS LEGS SYNDROME
     Dosage: 100 MG (50 MG, 2 IN 1 D)
     Dates: start: 20060130
  4. HYDROCODONE BITARTRATE + ACETAMINOPHEN [Concomitant]
  5. ALL OTHER THERAPEUTIC PRODUCTS (ALL OTHER THERAPEUTIC PRODUCTS) [Concomitant]

REACTIONS (2)
  - DIZZINESS [None]
  - INCREASED APPETITE [None]
